FAERS Safety Report 10697509 (Version 1)
Quarter: 2015Q1

REPORT INFORMATION
  Report Type: Spontaneous
  Country: US (occurrence: None)
  Receive Date: 20150107
  Receipt Date: 20150107
  Transmission Date: 20150721
  Serious: Yes (Death, Other)
  Sender: FDA-Public Use
  Company Number: None

PATIENT
  Age: 07 Year
  Sex: Female
  Weight: 16 kg

DRUGS (1)
  1. BOTOX [Suspect]
     Active Substance: ONABOTULINUMTOXINA
     Indication: MUSCLE SPASTICITY
     Dosage: 100 UNITS, ONCE, INRAMUSCULAR
     Route: 030
     Dates: start: 20140311, end: 20140311

REACTIONS (3)
  - Product quality issue [None]
  - Product contamination physical [None]
  - Sudden death [None]

NARRATIVE: CASE EVENT DATE: 20140311
